FAERS Safety Report 25737533 (Version 1)
Quarter: 2025Q3

REPORT INFORMATION
  Report Type: Spontaneous
  Country: AU (occurrence: AU)
  Receive Date: 20250828
  Receipt Date: 20250828
  Transmission Date: 20251021
  Serious: Yes (Hospitalization)
  Sender: PRINSTON PHARMACEUTICAL
  Company Number: AU-PRINSTON PHARMACEUTICAL INC.-2025PRN00277

PATIENT
  Age: 47 Year
  Sex: Female

DRUGS (1)
  1. CLONIDINE HYDROCHLORIDE [Suspect]
     Active Substance: CLONIDINE HYDROCHLORIDE
     Indication: Suicide attempt
     Route: 048

REACTIONS (2)
  - Stress cardiomyopathy [Unknown]
  - Overdose [Unknown]
